FAERS Safety Report 6649818-5 (Version None)
Quarter: 2010Q1

REPORT INFORMATION
  Report Type: 
  Country: None (occurrence: None)
  Receive Date: 20100325
  Receipt Date: 20100310
  Transmission Date: 20100710
  Serious: Yes (Hospitalization, Other)
  Sender: FDA-Public Use
  Company Number: BE-MYLANLABS-2010S1003991

PATIENT
  Age: 86 Year
  Sex: Male
  Weight: 72 kg

DRUGS (6)
  1. SOTALOL HCL [Suspect]
     Dosage: 160 MG/DAY
     Route: 065
  2. BUMETANIDE [Suspect]
     Dosage: 1 MG/DAY
     Route: 065
  3. METFORMIN HCL [Concomitant]
     Dosage: 850 MG/DAY
     Route: 065
  4. NISOLDIPINE [Concomitant]
     Dosage: 20 MG/DAY
     Route: 065
  5. PRAVASTATIN [Concomitant]
     Dosage: 20 MG/DAY
     Route: 065
  6. OMEPRAZOLE [Concomitant]
     Dosage: 20 MG/DAY
     Route: 065

REACTIONS (3)
  - OVERDOSE [None]
  - RENAL FAILURE [None]
  - TORSADE DE POINTES [None]
